FAERS Safety Report 16176055 (Version 2)
Quarter: 2019Q3

REPORT INFORMATION
  Report Type: Spontaneous
  Country: FR (occurrence: FR)
  Receive Date: 20190409
  Receipt Date: 20190812
  Transmission Date: 20191004
  Serious: Yes (Life-Threatening)
  Sender: FDA-Public Use
  Company Number: FR-MYLANLABS-2019M1032834

PATIENT
  Age: 26 Year
  Sex: Female
  Weight: 97 kg

DRUGS (14)
  1. THIOTEPA. [Suspect]
     Active Substance: THIOTEPA
     Indication: STEM CELL TRANSPLANT
     Dosage: 5 MILLIGRAM/KILOGRAM, QD
     Route: 042
     Dates: start: 20180524, end: 20180525
  2. BUSILVEX [Suspect]
     Active Substance: BUSULFAN
     Indication: STEM CELL TRANSPLANT
     Dosage: 3.2 MILLIGRAM/KILOGRAM, QD
     Route: 042
     Dates: start: 20180526, end: 20180528
  3. FORTUM                             /00559702/ [Suspect]
     Active Substance: CEFTAZIDIME
     Indication: PYREXIA
     Dosage: 6 GRAM, QD
     Route: 042
     Dates: start: 201806, end: 201806
  4. DELURSAN [Suspect]
     Active Substance: URSODIOL
     Indication: DRUG TOXICITY PROPHYLAXIS
     Dosage: 3 DOSAGE FORM, QD
     Route: 048
     Dates: start: 201805, end: 201806
  5. ACICLOVIR [Suspect]
     Active Substance: ACYCLOVIR
     Indication: PYREXIA
     Dosage: 750 MILLIGRAM, QD
     Route: 042
     Dates: start: 201806, end: 201806
  6. ENDOXAN                            /00021101/ [Suspect]
     Active Substance: CYCLOPHOSPHAMIDE
     Indication: PROPHYLAXIS AGAINST TRANSPLANT REJECTION
     Dosage: 50 MILLIGRAM/KILOGRAM, QD
     Route: 042
     Dates: start: 20180603, end: 20180604
  7. AMIKACIN. [Suspect]
     Active Substance: AMIKACIN
     Indication: PYREXIA
     Dosage: 1.5 GRAM, QD
     Route: 042
     Dates: start: 20180601, end: 20180603
  8. MYCOPHENOLATE MOFETIL. [Suspect]
     Active Substance: MYCOPHENOLATE MOFETIL
     Indication: PROPHYLAXIS AGAINST TRANSPLANT REJECTION
     Dosage: 45 MILLIGRAM/KILOGRAM, QD
     Route: 042
     Dates: start: 20180605, end: 201807
  9. ROCEPHINE [Suspect]
     Active Substance: CEFTRIAXONE SODIUM
     Indication: PYREXIA
     Dosage: 1 DOSAGE FORM, QD
     Route: 042
     Dates: start: 20180601, end: 20180603
  10. FLUDARABINE [Suspect]
     Active Substance: FLUDARABINE PHOSPHATE
     Indication: STEM CELL TRANSPLANT
     Dosage: 40 MILLIGRAM/SQ. METER, QD
     Route: 042
     Dates: start: 20180526, end: 20180529
  11. TRIFLUCAN [Suspect]
     Active Substance: FLUCONAZOLE
     Indication: PYREXIA
     Dosage: 200 MILLIGRAM, QD
     Route: 042
     Dates: start: 201806, end: 201806
  12. VANCOMYCIN [Suspect]
     Active Substance: VANCOMYCIN
     Indication: PYREXIA
     Dosage: 2.5 GRAM, QD
     Route: 042
     Dates: start: 201806, end: 201806
  13. CICLOSPORIN [Suspect]
     Active Substance: CYCLOSPORINE
     Indication: PROPHYLAXIS AGAINST TRANSPLANT REJECTION
     Dosage: 3 MILLIGRAM/KILOGRAM, QD
     Route: 042
     Dates: start: 20180605, end: 20180614
  14. CELLCEPT [Suspect]
     Active Substance: MYCOPHENOLATE MOFETIL\MYCOPHENOLATE MOFETIL HYDROCHLORIDE
     Indication: PROPHYLAXIS AGAINST TRANSPLANT REJECTION
     Dosage: 45 MILLIGRAM/KILOGRAM, QD
     Route: 042
     Dates: start: 20180605, end: 201806

REACTIONS (2)
  - Myocarditis [Recovering/Resolving]
  - Cardiac tamponade [Recovered/Resolved]

NARRATIVE: CASE EVENT DATE: 20180609
